FAERS Safety Report 10450819 (Version 1)
Quarter: 2014Q3

REPORT INFORMATION
  Report Type: Spontaneous
  Country: US (occurrence: None)
  Receive Date: 20140910
  Receipt Date: 20140910
  Transmission Date: 20150326
  Serious: Yes (Other)
  Sender: FDA-Public Use
  Company Number: 2014EXPUS00228

PATIENT
  Age: 83 Year
  Sex: Female
  Weight: 59 kg

DRUGS (3)
  1. EXPAREL [Suspect]
     Active Substance: BUPIVACAINE
     Indication: POSTOPERATIVE ANALGESIA
     Dosage: FIRST ADMINISTRATION INTO POSTERIOR CAPSULE; SECOND ADMINISTRATION SUBCUTANEOUSLY. TOTAL: 20CC^S
     Dates: start: 20140819, end: 20140819
  2. ANESTHETICS [Concomitant]
     Active Substance: UNSPECIFIED INGREDIENT
  3. MARCAINE [Suspect]
     Active Substance: BUPIVACAINE HYDROCHLORIDE
     Indication: POSTOPERATIVE ANALGESIA
     Dosage: 30 CC^S TOTAL. INITALLY 10CC^S ADMINISTERED, THEN THE REMAINING LATER, SUBCUTANEOUS
     Route: 058
     Dates: start: 20140819, end: 20140819

REACTIONS (4)
  - Nausea [None]
  - Atrioventricular block first degree [None]
  - Atrioventricular block complete [None]
  - Electrocardiogram PR prolongation [None]

NARRATIVE: CASE EVENT DATE: 20140819
